APPROVED DRUG PRODUCT: PREVACID 24 HR
Active Ingredient: LANSOPRAZOLE
Strength: 15MG
Dosage Form/Route: CAPSULE, DELAYED REL PELLETS;ORAL
Application: N022327 | Product #001
Applicant: PERRIGO PHARMA INTERNATIONAL DESIGNATED ACTIVITY CO
Approved: May 18, 2009 | RLD: Yes | RS: Yes | Type: OTC